FAERS Safety Report 18938101 (Version 5)
Quarter: 2021Q2

REPORT INFORMATION
  Report Type: Report from Study
  Country: US (occurrence: US)
  Receive Date: 20210224
  Receipt Date: 20210618
  Transmission Date: 20210717
  Serious: Yes (Hospitalization, Other)
  Sender: FDA-Public Use
  Company Number: US-B.I. PHARMACEUTICALS,INC./RIDGEFIELD-2020-BI-065908

PATIENT
  Age: 69 Year
  Sex: Female
  Weight: 53.9 kg

DRUGS (6)
  1. METOPROLOL. [Concomitant]
     Active Substance: METOPROLOL
     Indication: PRODUCT USED FOR UNKNOWN INDICATION
  2. RIVAROXABAN [Suspect]
     Active Substance: RIVAROXABAN
     Indication: PRODUCT USED FOR UNKNOWN INDICATION
     Route: 065
  3. GABAPENTIN. [Suspect]
     Active Substance: GABAPENTIN
     Indication: PRODUCT USED FOR UNKNOWN INDICATION
  4. OFEV [Suspect]
     Active Substance: NINTEDANIB
     Indication: IDIOPATHIC PULMONARY FIBROSIS
     Route: 048
     Dates: start: 20201125
  5. OFEV [Suspect]
     Active Substance: NINTEDANIB
     Indication: PULMONARY ARTERIAL HYPERTENSION
     Dosage: OFEV DOSE 200MG DAILY
     Route: 048
     Dates: end: 20210202
  6. GLIPIZIDE. [Concomitant]
     Active Substance: GLIPIZIDE
     Indication: PRODUCT USED FOR UNKNOWN INDICATION

REACTIONS (27)
  - Cerebral haemorrhage [Unknown]
  - Pseudostroke [Unknown]
  - Headache [Recovered/Resolved]
  - Eyelid disorder [Unknown]
  - Gait disturbance [Unknown]
  - Insomnia [Unknown]
  - Blood pressure increased [Not Recovered/Not Resolved]
  - Concussion [Unknown]
  - Headache [Not Recovered/Not Resolved]
  - Diarrhoea [Recovered/Resolved]
  - Disorientation [Unknown]
  - Alopecia [Not Recovered/Not Resolved]
  - Blood glucose increased [Unknown]
  - Sciatica [Unknown]
  - Fall [Recovering/Resolving]
  - Nausea [Unknown]
  - Intervertebral disc protrusion [Unknown]
  - Spinal synovial cyst [Unknown]
  - Alopecia [Not Recovered/Not Resolved]
  - Asthenia [Unknown]
  - Dry throat [Not Recovered/Not Resolved]
  - Dysphagia [Unknown]
  - Pain in extremity [Not Recovered/Not Resolved]
  - Diarrhoea [Not Recovered/Not Resolved]
  - Hypoaesthesia [Unknown]
  - Hypertension [Not Recovered/Not Resolved]
  - Head injury [Unknown]

NARRATIVE: CASE EVENT DATE: 20201130
